FAERS Safety Report 12578453 (Version 1)
Quarter: 2016Q3

REPORT INFORMATION
  Report Type: Spontaneous
  Country: US (occurrence: US)
  Receive Date: 20160721
  Receipt Date: 20160721
  Transmission Date: 20161109
  Serious: No
  Sender: FDA-Public Use
  Company Number: US-009507513-1607USA000361

PATIENT
  Age: 41 Year
  Sex: Female

DRUGS (5)
  1. BELSOMRA [Suspect]
     Active Substance: SUVOREXANT
     Indication: SLEEP DISORDER
     Dosage: 10 MG, QPM
     Route: 048
     Dates: start: 20160629
  2. LORAZEPAM. [Concomitant]
     Active Substance: LORAZEPAM
     Indication: ANXIETY
     Dosage: 3 TO 4 MG IN THE EVENING
  3. LORAZEPAM. [Concomitant]
     Active Substance: LORAZEPAM
     Dosage: 1 TO 2 MG DURING THE DAY
  4. FERROSOL [Concomitant]
     Indication: MINERAL SUPPLEMENTATION
     Dosage: UNK
  5. FERROSOL [Concomitant]
     Indication: IRON DEFICIENCY

REACTIONS (4)
  - Blood cortisol increased [Unknown]
  - Metabolic syndrome [Unknown]
  - Anxiety [Unknown]
  - Irritability [Unknown]

NARRATIVE: CASE EVENT DATE: 201606
